FAERS Safety Report 4818527-7 (Version None)
Quarter: 2005Q4

REPORT INFORMATION
  Report Type: 
  Country: None (occurrence: None)
  Receive Date: 20051102
  Receipt Date: 20051004
  Transmission Date: 20060501
  Serious: Yes (Other)
  Sender: FDA-Public Use
  Company Number: JP-GILEAD-2005-0008782

PATIENT
  Sex: Male

DRUGS (9)
  1. HEPSERA [Suspect]
     Indication: HEPATITIS B
     Route: 048
     Dates: start: 20050910
  2. HEPSERA [Suspect]
     Dates: start: 20050803, end: 20050909
  3. HEPSERA [Suspect]
     Route: 048
     Dates: start: 20040114, end: 20050802
  4. ZEFFIX [Concomitant]
     Dates: start: 20010508
  5. FLUITRAN [Concomitant]
  6. AMOBAN [Concomitant]
  7. MYSLEE [Concomitant]
  8. GASTER [Concomitant]
  9. MUCOSTA [Concomitant]

REACTIONS (1)
  - GLOMERULONEPHRITIS MEMBRANOPROLIFERATIVE [None]
